FAERS Safety Report 5355466-X (Version None)
Quarter: 2007Q2

REPORT INFORMATION
  Report Type: 
  Country: None (occurrence: None)
  Receive Date: 20070611
  Receipt Date: 20070611
  Transmission Date: 20071010
  Serious: Yes (Hospitalization)
  Sender: FDA-Public Use
  Company Number: None

PATIENT
  Sex: Female
  Weight: 54.4316 kg

DRUGS (1)
  1. METROGEL [Suspect]
     Indication: ROSACEA
     Dosage: APPLY TOPICALLY 2X PER DAY TOPICAL
     Route: 061
     Dates: start: 19970101, end: 20000101

REACTIONS (6)
  - BALANCE DISORDER [None]
  - CONVULSION [None]
  - COORDINATION ABNORMAL [None]
  - SENSORY LOSS [None]
  - VERTIGO [None]
  - WALKING AID USER [None]
